FAERS Safety Report 4459137-3 (Version None)
Quarter: 2004Q3

REPORT INFORMATION
  Report Type: 
  Country: None (occurrence: None)
  Receive Date: 20040920
  Receipt Date: 20040920
  Transmission Date: 20050211
  Serious: Yes (Other)
  Sender: FDA-Public Use
  Company Number: None

PATIENT
  Age: 84 Year
  Sex: Female
  Weight: 40.8237 kg

DRUGS (1)
  1. NAMENDA 10 MG BID [Suspect]
     Indication: DEMENTIA ALZHEIMER'S TYPE
     Dosage: 10 MG BID [PRIOR TO ADMISSION THRU 8/18/04]
     Dates: end: 20040818

REACTIONS (3)
  - DYSKINESIA [None]
  - SPEECH DISORDER [None]
  - TIC [None]
